FAERS Safety Report 5751285-0 (Version None)
Quarter: 2008Q2

REPORT INFORMATION
  Report Type: 
  Country: None (occurrence: None)
  Receive Date: 20080528
  Receipt Date: 20080519
  Transmission Date: 20081010
  Serious: Yes (Other)
  Sender: FDA-Public Use
  Company Number: US-PFIZER INC-2008012581

PATIENT
  Sex: Female
  Weight: 81.6 kg

DRUGS (2)
  1. DETROL LA [Suspect]
  2. ANTI-DIABETICS [Suspect]
     Indication: DIABETES MELLITUS

REACTIONS (1)
  - BLOOD GLUCOSE INCREASED [None]
